FAERS Safety Report 4398022-2 (Version None)
Quarter: 2004Q2

REPORT INFORMATION
  Report Type: 
  Country: None (occurrence: None)
  Receive Date: 20040621
  Receipt Date: 20031030
  Transmission Date: 20050107
  Serious: Yes (Other)
  Sender: FDA-Public Use
  Company Number: USA-2003-0009065

PATIENT
  Age: 37 Year
  Sex: Male
  Weight: 92.5 kg

DRUGS (5)
  1. OXYCONTIN [Suspect]
     Indication: PAIN
     Dosage: 20 MG, DAILY
  2. REMERON [Concomitant]
  3. ZANAFLEX [Concomitant]
  4. TALWIN [Concomitant]
  5. VIOXX [Concomitant]

REACTIONS (10)
  - DECREASED APPETITE [None]
  - DIARRHOEA [None]
  - DRUG ABUSER [None]
  - DRUG DEPENDENCE [None]
  - DRUG WITHDRAWAL SYNDROME [None]
  - EMOTIONAL DISTRESS [None]
  - HEADACHE [None]
  - MUSCULOSKELETAL STIFFNESS [None]
  - PAIN [None]
  - TREMOR [None]
